FAERS Safety Report 7265204-1 (Version None)
Quarter: 2011Q1

REPORT INFORMATION
  Report Type: 
  Country: None (occurrence: None)
  Receive Date: 20110131
  Receipt Date: 20110120
  Transmission Date: 20110831
  Serious: Yes (Other)
  Sender: FDA-Public Use
  Company Number: ES-ASTRAZENECA-2011SE03569

PATIENT
  Age: 42 Year
  Sex: Female

DRUGS (1)
  1. IRESSA [Suspect]
     Indication: LUNG CANCER METASTATIC
     Route: 048
     Dates: start: 20100913

REACTIONS (2)
  - ACNE [None]
  - HIRSUTISM [None]
